FAERS Safety Report 20850920 (Version 1)
Quarter: 2022Q2

REPORT INFORMATION
  Report Type: Spontaneous
  Country: CN (occurrence: CN)
  Receive Date: 20220519
  Receipt Date: 20220519
  Transmission Date: 20220721
  Serious: Yes (Other)
  Sender: FDA-Public Use
  Company Number: CN-PFIZER INC-202200708404

PATIENT
  Age: 37 Year
  Sex: Male
  Weight: 78 kg

DRUGS (4)
  1. CYTARABINE [Suspect]
     Active Substance: CYTARABINE
     Indication: Burkitt^s lymphoma
     Dosage: 1.9 G, 2X/DAY
     Route: 041
     Dates: start: 20220415, end: 20220416
  2. METHOTREXATE [Suspect]
     Active Substance: METHOTREXATE
     Indication: Burkitt^s lymphoma
     Dosage: 1.9 G, 1X/DAY
     Route: 041
     Dates: start: 20220414, end: 20220414
  3. METHOTREXATE [Suspect]
     Active Substance: METHOTREXATE
     Dosage: 1710 MG, 1X/DAY
     Route: 041
     Dates: start: 20220414, end: 20220414
  4. MABTHERA [Concomitant]
     Active Substance: RITUXIMAB
     Indication: Burkitt^s lymphoma
     Dosage: 700 MG

REACTIONS (2)
  - Myelosuppression [Not Recovered/Not Resolved]
  - C-reactive protein increased [Recovering/Resolving]

NARRATIVE: CASE EVENT DATE: 20220422
